FAERS Safety Report 16482565 (Version 1)
Quarter: 2019Q2

REPORT INFORMATION
  Report Type: Spontaneous
  Country: CA (occurrence: CA)
  Receive Date: 20190627
  Receipt Date: 20190627
  Transmission Date: 20190711
  Serious: Yes (Life-Threatening, Hospitalization, Disabling)
  Sender: FDA-Public Use
  Company Number: CA-TEVA-2019-CA-1066389

PATIENT
  Age: 44 Year
  Sex: Female
  Weight: 41 kg

DRUGS (13)
  1. CLONAZEPAM. [Concomitant]
     Active Substance: CLONAZEPAM
  2. NOZINAN [Concomitant]
     Active Substance: LEVOMEPROMAZINE
  3. CELSENTRI [Concomitant]
     Active Substance: MARAVIROC
  4. METHYLPREDNISOLONE SODIUM SUCCINATE. [Suspect]
     Active Substance: METHYLPREDNISOLONE SODIUM SUCCINATE
     Indication: IMMUNE RECONSTITUTION INFLAMMATORY SYNDROME
     Route: 042
  5. VENLAFAXINE XR [Concomitant]
     Active Substance: VENLAFAXINE HYDROCHLORIDE
  6. CELEBREX [Concomitant]
     Active Substance: CELECOXIB
  7. NABILONE [Concomitant]
     Active Substance: NABILONE
  8. ONDANSETRON [Concomitant]
     Active Substance: ONDANSETRON
  9. SENNOSIDES. [Concomitant]
     Active Substance: SENNOSIDES
  10. TYLENOL [Concomitant]
     Active Substance: ACETAMINOPHEN
  11. INSULIN [Concomitant]
     Active Substance: INSULIN NOS
  12. LANSOPRAZOLE. [Concomitant]
     Active Substance: LANSOPRAZOLE
  13. LAX-A-DAY [Concomitant]
     Route: 048

REACTIONS (3)
  - Blood alkaline phosphatase increased [Recovering/Resolving]
  - Alanine aminotransferase increased [Recovering/Resolving]
  - Product use in unapproved indication [Recovering/Resolving]
